FAERS Safety Report 21095508 (Version 1)
Quarter: 2022Q3

REPORT INFORMATION
  Report Type: Spontaneous
  Country: US (occurrence: US)
  Receive Date: 20220718
  Receipt Date: 20220718
  Transmission Date: 20221026
  Serious: No
  Sender: FDA-Public Use
  Company Number: US-BRISTOL-MYERS SQUIBB COMPANY-2022-073263

PATIENT
  Age: 71 Year
  Sex: Female
  Weight: 86.64 kg

DRUGS (1)
  1. REVLIMID [Suspect]
     Active Substance: LENALIDOMIDE
     Indication: Plasma cell myeloma
     Dosage: DAILY ON MONDAYS AND FRIDAYS ONLY FOR 3 WEEKS? Q21 DAYS
     Route: 048
     Dates: start: 20200226

REACTIONS (1)
  - Dysgeusia [Recovered/Resolved]
